FAERS Safety Report 11936131 (Version 1)
Quarter: 2016Q1

REPORT INFORMATION
  Report Type: Spontaneous
  Country: CN (occurrence: CN)
  Receive Date: 20160121
  Receipt Date: 20160121
  Transmission Date: 20160526
  Serious: Yes (Other)
  Sender: FDA-Public Use
  Company Number: CN-SA-2016SA010162

PATIENT
  Age: 52 Year
  Sex: Male

DRUGS (4)
  1. AVASTIN [Concomitant]
     Active Substance: BEVACIZUMAB
     Dates: start: 20150401
  2. DOLASETRON MESILATE [Concomitant]
     Indication: ANTIEMETIC SUPPORTIVE CARE
  3. FLUOROURACIL. [Concomitant]
     Active Substance: FLUOROURACIL
     Dates: start: 20150401, end: 20150403
  4. ELOXATIN [Suspect]
     Active Substance: OXALIPLATIN
     Indication: DRUG THERAPY
     Route: 041
     Dates: start: 20150401, end: 20150401

REACTIONS (2)
  - Blepharitis [Recovered/Resolved]
  - Flushing [Recovered/Resolved]

NARRATIVE: CASE EVENT DATE: 20150401
